FAERS Safety Report 9291528 (Version 1)
Quarter: 2013Q2

REPORT INFORMATION
  Report Type: Spontaneous
  Country: US (occurrence: US)
  Receive Date: 20130515
  Receipt Date: 20130515
  Transmission Date: 20140414
  Serious: Yes (Other)
  Sender: FDA-Public Use
  Company Number: US-GLAXOSMITHKLINE-A1022806A

PATIENT
  Age: 53 Year
  Sex: Female

DRUGS (7)
  1. ADVAIR [Suspect]
     Indication: CHRONIC OBSTRUCTIVE PULMONARY DISEASE
     Dosage: 1PUFF TWICE PER DAY
     Route: 055
     Dates: start: 2002
  2. SPIRIVA [Concomitant]
  3. XOPENEX [Concomitant]
  4. KLONOPIN [Concomitant]
  5. TRAMADOL [Concomitant]
  6. FEXOFENADINE [Concomitant]
  7. METHOCARBAMOL [Concomitant]

REACTIONS (4)
  - Age-related macular degeneration [Not Recovered/Not Resolved]
  - Cataract [Not Recovered/Not Resolved]
  - Herpes zoster [Unknown]
  - Photopsia [Not Recovered/Not Resolved]
